FAERS Safety Report 11285783 (Version 3)
Quarter: 2015Q3

REPORT INFORMATION
  Report Type: Report from Study
  Country: US (occurrence: US)
  Receive Date: 20150721
  Receipt Date: 20150806
  Transmission Date: 20151125
  Serious: Yes (Other)
  Sender: FDA-Public Use
  Company Number: US-009507513-1507USA007199

PATIENT

DRUGS (2)
  1. LEDIPASVIR (+) SOFOSBUVIR [Suspect]
     Active Substance: LEDIPASVIR\SOFOSBUVIR
     Indication: CHRONIC HEPATITIS C
     Dosage: UNK
  2. REBETOL [Suspect]
     Active Substance: RIBAVIRIN
     Indication: CHRONIC HEPATITIS C
     Dosage: 600 MG/DAY AND ESCALATED AS TOLERATED (DECOMPENSATED) OR WEIGHT-BASED (1000- 1200 MG/DAY; FO-F3, CP)
     Route: 048

REACTIONS (1)
  - Anaemia [Unknown]
